FAERS Safety Report 5535886-0 (Version None)
Quarter: 2007Q4

REPORT INFORMATION
  Report Type: 
  Country: None (occurrence: None)
  Receive Date: 20071206
  Receipt Date: 20070619
  Transmission Date: 20080405
  Serious: Yes (Hospitalization, Other)
  Sender: FDA-Public Use
  Company Number: US-AMGEN-US230287

PATIENT
  Sex: Male

DRUGS (8)
  1. ENBREL [Suspect]
     Indication: RHEUMATOID ARTHRITIS
     Route: 058
     Dates: start: 19990101
  2. COUMADIN [Concomitant]
     Route: 065
  3. FLUNISOLIDE [Concomitant]
     Route: 055
  4. HYDROCHLOROTHIAZIDE [Concomitant]
     Route: 065
  5. FOSAMAX [Concomitant]
     Route: 065
  6. TEMAZEPAM [Concomitant]
     Route: 065
  7. VERAPAMIL [Concomitant]
     Route: 065
  8. PREDNISONE TAB [Concomitant]
     Route: 065

REACTIONS (4)
  - COUGH [None]
  - EPISTAXIS [None]
  - PNEUMONIA STAPHYLOCOCCAL [None]
  - WEIGHT DECREASED [None]
